FAERS Safety Report 5743362-5 (Version None)
Quarter: 2008Q2

REPORT INFORMATION
  Report Type: 
  Country: None (occurrence: None)
  Receive Date: 20080520
  Receipt Date: 20080512
  Transmission Date: 20081010
  Serious: Yes (Hospitalization)
  Sender: FDA-Public Use
  Company Number: GB-RANBAXY-2008RR-15144

PATIENT

DRUGS (3)
  1. ATENOLOL [Suspect]
     Indication: ESSENTIAL HYPERTENSION
     Dosage: 50 MG, QD
  2. BENDROFLUMETHIAZIDE [Suspect]
     Indication: ESSENTIAL HYPERTENSION
     Dosage: 5 MG, QD
  3. RENNIE [Concomitant]
     Indication: DYSPEPSIA

REACTIONS (1)
  - MILK-ALKALI SYNDROME [None]
